FAERS Safety Report 5475975-2 (Version None)
Quarter: 2007Q4

REPORT INFORMATION
  Report Type: 
  Country: None (occurrence: None)
  Receive Date: 20071003
  Receipt Date: 20070926
  Transmission Date: 20080405
  Serious: Yes (Death, Hospitalization)
  Sender: FDA-Public Use
  Company Number: JP-ELI_LILLY_AND_COMPANY-JP200709006356

PATIENT
  Age: 78 Year
  Sex: Male
  Weight: 68.3 kg

DRUGS (3)
  1. PEMETREXED [Suspect]
     Indication: PLEURAL MESOTHELIOMA MALIGNANT
     Dosage: UNK, OTHER
     Route: 042
     Dates: start: 20070522
  2. FOLIC ACID [Concomitant]
     Dosage: UNK, UNKNOWN
     Route: 065
  3. VITAMIN B12 NOS [Concomitant]
     Dosage: UNK, UNKNOWN
     Route: 065
     Dates: start: 20070101

REACTIONS (1)
  - SEPSIS [None]
